FAERS Safety Report 18683938 (Version 2)
Quarter: 2021Q1

REPORT INFORMATION
  Report Type: Spontaneous
  Country: US (occurrence: US)
  Receive Date: 20201230
  Receipt Date: 20210122
  Transmission Date: 20210419
  Serious: Yes (Death, Hospitalization)
  Sender: FDA-Public Use
  Company Number: US-FARMAPROD-202010-1362

PATIENT
  Sex: Male

DRUGS (7)
  1. ERYTHROMYCIN. [Concomitant]
     Active Substance: ERYTHROMYCIN
  2. PATADAY [Concomitant]
     Active Substance: OLOPATADINE HYDROCHLORIDE
  3. DUREZOL [Concomitant]
     Active Substance: DIFLUPREDNATE
  4. OXERVATE [Suspect]
     Active Substance: CENEGERMIN-BKBJ
     Indication: NEUROTROPHIC KERATOPATHY
     Route: 047
     Dates: start: 20201005
  5. PREDNISOLONE ACETATE. [Concomitant]
     Active Substance: PREDNISOLONE ACETATE
     Dosage: DROPS SUSPENSION
  6. OFLOXACIN. [Concomitant]
     Active Substance: OFLOXACIN
  7. SYSTANE (HYPROMELLOSE 2910 (4000 MPA.S)) [Concomitant]
     Active Substance: HYPROMELLOSE 2910 (4000 MPA.S)
     Dosage: 0.3%?0.4% DROPERETTE

REACTIONS (7)
  - Infection [Recovered/Resolved with Sequelae]
  - Ocular discomfort [Recovered/Resolved]
  - Eye pain [Recovered/Resolved]
  - Eye infection [Recovered/Resolved with Sequelae]
  - Diabetes mellitus [Fatal]
  - Chronic kidney disease [Fatal]
  - Vision blurred [Recovered/Resolved]
